FAERS Safety Report 18241903 (Version 2)
Quarter: 2020Q3

REPORT INFORMATION
  Report Type: Spontaneous
  Country: US (occurrence: US)
  Receive Date: 20200908
  Receipt Date: 20200920
  Transmission Date: 20201103
  Serious: Yes (Hospitalization)
  Sender: FDA-Public Use
  Company Number: US-TEVA-2020-US-1824673

PATIENT
  Age: 66 Year
  Sex: Male

DRUGS (12)
  1. ZYTIGA [Interacting]
     Active Substance: ABIRATERONE ACETATE
     Indication: PROSTATE CANCER METASTATIC
     Dosage: STARTED ON ABIRATERONE ACETATE FOR METASTATIC CASTRATION RESISTANT PROSTATE CANCERS (MCRPCS) 3 MO...
     Route: 065
  2. PREDNISONE. [Concomitant]
     Active Substance: PREDNISONE
     Indication: PROSTATE CANCER METASTATIC
     Dosage: 5 MILLIGRAM DAILY; STARTED ON LOW?DOSE PREDNISONE FOR METASTATIC CASTRATION RESISTANT PROSTATE CANCE
     Route: 065
  3. ENZALUTAMIDE [Concomitant]
     Active Substance: ENZALUTAMIDE
     Indication: PROSTATE CANCER METASTATIC
     Dosage: THE PATIENT HAD PROGRESSED ON ENZALUTAMIDE, WHICH WAS STARTED FOR PROGRESSIVE DISEASE AFTER SURGI...
     Route: 065
  4. TAXOTERE [Concomitant]
     Active Substance: DOCETAXEL
     Indication: PROSTATE CANCER METASTATIC
     Dosage: HE WAS INITIATED ON DOCETAXEL [TAXOTERE] FOR METASTATIC CASTRATION RESISTANT PROSTATE CANCERS (MC...
     Route: 065
  5. AMLODIPINE [Interacting]
     Active Substance: AMLODIPINE BESYLATE
     Indication: HYPERTENSION
     Dosage: 5 MILLIGRAM DAILY; AMLODIPINE 5 MG DAILY FOR HYPERTENSION
     Route: 065
  6. TAXOTERE [Concomitant]
     Active Substance: DOCETAXEL
     Indication: HORMONE-REFRACTORY PROSTATE CANCER
  7. SIMVASTATIN. [Suspect]
     Active Substance: SIMVASTATIN
     Indication: HYPERLIPIDAEMIA
     Dosage: 40 MILLIGRAM DAILY; STARTED SIMVASTATIN 40 MG DAILY FOR MILD HYPERLIPIDEMIA 6?7 YEARS PRIOR, BUT PAT
     Route: 065
  8. SIMVASTATIN. [Interacting]
     Active Substance: SIMVASTATIN
     Dosage: 20 MILLIGRAM DAILY; SIMVASTATIN 20 MG DAILY FOR MILD HYPERLIPIDEMIA (PATIENT REDUCED DOSE TO 20 MG 3
     Route: 065
  9. ZYTIGA [Interacting]
     Active Substance: ABIRATERONE ACETATE
     Indication: HORMONE-REFRACTORY PROSTATE CANCER
  10. PREDNISONE. [Concomitant]
     Active Substance: PREDNISONE
     Indication: HORMONE-REFRACTORY PROSTATE CANCER
  11. METOPROLOL. [Concomitant]
     Active Substance: METOPROLOL
     Indication: HYPERTENSION
     Dosage: METOPROLOL 25 MG BID (TWICE A DAY) FOR HYPERTENSION (STARTED 3 YEARS PRIOR)
     Route: 065
  12. ENZALUTAMIDE [Concomitant]
     Active Substance: ENZALUTAMIDE
     Indication: HORMONE-REFRACTORY PROSTATE CANCER

REACTIONS (2)
  - Drug interaction [Recovered/Resolved]
  - Rhabdomyolysis [Recovered/Resolved]
